FAERS Safety Report 9530424 (Version 3)
Quarter: 2014Q4

REPORT INFORMATION
  Report Type: Report from Study
  Country: CN (occurrence: CN)
  Receive Date: 20130918
  Receipt Date: 20141203
  Transmission Date: 20150529
  Serious: Yes (Hospitalization)
  Sender: FDA-Public Use
  Company Number: CN-ROCHE-1275620

PATIENT
  Age: 35 Year
  Sex: Male
  Weight: 65 kg

DRUGS (2)
  1. ADEFOVIR [Suspect]
     Active Substance: ADEFOVIR
     Indication: CHRONIC HEPATITIS B
     Dosage: LAST DOSE PRIOR TO SAE: 19/JUL/2012
     Route: 048
     Dates: start: 20120621
  2. PEGINTERFERON ALFA-2A [Suspect]
     Active Substance: PEGINTERFERON ALFA-2A
     Indication: CHRONIC HEPATITIS B
     Route: 058
     Dates: start: 20130822, end: 20130910

REACTIONS (3)
  - Anaemia [Recovered/Resolved]
  - Gingival bleeding [Recovered/Resolved]
  - Thrombocytopenia [Recovered/Resolved]

NARRATIVE: CASE EVENT DATE: 20130911
